FAERS Safety Report 7496827-2 (Version None)
Quarter: 2011Q2

REPORT INFORMATION
  Report Type: 
  Country: None (occurrence: None)
  Receive Date: 20110523
  Receipt Date: 20110517
  Transmission Date: 20111010
  Serious: Yes (Other)
  Sender: FDA-Public Use
  Company Number: US-ROCHE-777929

PATIENT
  Sex: Male
  Weight: 83.9 kg

DRUGS (5)
  1. CALCIUM CARBONATE [Concomitant]
  2. GLUCOSAMINE [Concomitant]
  3. FOSAMAX [Suspect]
     Route: 065
  4. BONIVA [Suspect]
     Indication: OSTEOPOROSIS
     Route: 065
     Dates: start: 20060101
  5. ASCORBIC ACID [Concomitant]

REACTIONS (3)
  - LOWER LIMB FRACTURE [None]
  - JOINT ARTHROPLASTY [None]
  - EXOSTOSIS [None]
